FAERS Safety Report 21133893 (Version 1)
Quarter: 2022Q3

REPORT INFORMATION
  Report Type: Spontaneous
  Country: US (occurrence: US)
  Receive Date: 20220726
  Receipt Date: 20220726
  Transmission Date: 20221027
  Serious: No
  Sender: FDA-Public Use
  Company Number: US-OYSTER POINT PHARMA, INC.-2022OYS00500

PATIENT
  Age: 80 Year
  Sex: Female

DRUGS (3)
  1. TYRVAYA [Suspect]
     Active Substance: VARENICLINE TARTRATE
     Indication: Hypersensitivity
     Dosage: 1 SQUIRT IN EACH NOSTRIL, 2X/DAY (MORE THAN 12 HOURS APART)
     Route: 045
     Dates: start: 20220514, end: 20220516
  2. TYRVAYA [Suspect]
     Active Substance: VARENICLINE TARTRATE
     Dosage: 1 SQUIRT IN EACH NOSTRIL, 2X/DAY (MORE THAN 12 HOURS APART)
     Route: 045
     Dates: start: 20220517
  3. AYR ALLERGY AND SINUS HYPERTONIC SALINE NASAL MIST [Concomitant]
     Dosage: 1 SQUIRT, UP TO 3X/DAY AS NEEDED
     Route: 045

REACTIONS (6)
  - Rhinorrhoea [Not Recovered/Not Resolved]
  - Paranasal sinus hypersecretion [Not Recovered/Not Resolved]
  - Nasal discomfort [Not Recovered/Not Resolved]
  - Off label use [Not Recovered/Not Resolved]
  - Product delivery mechanism issue [Unknown]
  - Intentional product misuse [Not Recovered/Not Resolved]

NARRATIVE: CASE EVENT DATE: 20220501
